FAERS Safety Report 9935226 (Version 2)
Quarter: 2014Q1

REPORT INFORMATION
  Report Type: Spontaneous
  Country: US (occurrence: US)
  Receive Date: 20140228
  Receipt Date: 20140228
  Transmission Date: 20141002
  Serious: Yes (Hospitalization)
  Sender: FDA-Public Use
  Company Number: US-UCBSA-103468

PATIENT
  Age: 30 Year
  Sex: Male
  Weight: 83.63 kg

DRUGS (2)
  1. CIMZIA [Suspect]
     Indication: CROHN^S DISEASE
     Dates: start: 20130930, end: 20130930
  2. IMURAN [Concomitant]
     Indication: CROHN^S DISEASE

REACTIONS (2)
  - Abscess intestinal [Not Recovered/Not Resolved]
  - Intestinal stenosis [Not Recovered/Not Resolved]
